FAERS Safety Report 23568055 (Version 4)
Quarter: 2024Q2

REPORT INFORMATION
  Report Type: Spontaneous
  Country: US (occurrence: US)
  Receive Date: 20240226
  Receipt Date: 20240625
  Transmission Date: 20240716
  Serious: No
  Sender: FDA-Public Use
  Company Number: US-SA-SAC20240221001174

PATIENT
  Age: 21 Year
  Sex: Male

DRUGS (2)
  1. FABRAZYME [Suspect]
     Active Substance: AGALSIDASE BETA
     Indication: Fabry^s disease
     Dosage: 70 MG, QOW
     Route: 042
     Dates: start: 202105, end: 20240214
  2. FABRAZYME [Suspect]
     Active Substance: AGALSIDASE BETA
     Dosage: 70 MG, QOW
     Route: 042
     Dates: start: 2024

REACTIONS (10)
  - Tremor [Recovered/Resolved]
  - Hypophagia [Unknown]
  - Cardiac disorder [Unknown]
  - Anxiety [Unknown]
  - Poor venous access [Unknown]
  - Dizziness [Unknown]
  - Malaise [Unknown]
  - Chest discomfort [Unknown]
  - Dyspnoea [Recovered/Resolved]
  - Dizziness [Not Recovered/Not Resolved]

NARRATIVE: CASE EVENT DATE: 20240214
